FAERS Safety Report 4787009-3 (Version None)
Quarter: 2005Q3

REPORT INFORMATION
  Report Type: 
  Country: None (occurrence: None)
  Receive Date: 20050930
  Receipt Date: 20050204
  Transmission Date: 20060218
  Serious: Yes (Hospitalization)
  Sender: FDA-Public Use
  Company Number: 2005FR-00292

PATIENT
  Age: 79 Year
  Sex: Female

DRUGS (7)
  1. ASPIRIN [Suspect]
     Indication: PROPHYLAXIS
     Dates: end: 20041010
  2. ARCOXIA [Suspect]
     Indication: OSTEOARTHRITIS
     Dosage: 60 MG OD, ORAL
     Route: 048
     Dates: start: 20040825, end: 20041010
  3. ATENOLOL [Concomitant]
  4. ATORVASTATIN [Concomitant]
  5. ADCAL-D3 [Concomitant]
  6. ZOPICLONE [Concomitant]
  7. ACETAMINOPHEN W/ CODEINE [Concomitant]

REACTIONS (2)
  - GASTRIC ULCER HAEMORRHAGE [None]
  - HAEMATEMESIS [None]
